FAERS Safety Report 9018381 (Version 6)
Quarter: 2014Q1

REPORT INFORMATION
  Report Type: Spontaneous
  Country: US (occurrence: US)
  Receive Date: 20130118
  Receipt Date: 20140227
  Transmission Date: 20141002
  Serious: No
  Sender: FDA-Public Use
  Company Number: US-PFIZER INC-2013021630

PATIENT
  Age: 50 Year
  Sex: Female
  Weight: 98.87 kg

DRUGS (8)
  1. LYRICA [Suspect]
     Indication: MULTIPLE SCLEROSIS
     Dosage: 100 MG, 1X/DAY
     Route: 048
     Dates: start: 2012
  2. LYRICA [Suspect]
     Indication: PAIN IN EXTREMITY
     Dosage: 100 MG, 1X/DAY
     Route: 048
     Dates: start: 2013
  3. LYRICA [Suspect]
     Indication: NEURALGIA
  4. LYRICA [Suspect]
     Indication: MULTIPLE SCLEROSIS
  5. FLORINEF [Concomitant]
     Dosage: 0.1 MG, UNK
  6. TIZANIDINE [Concomitant]
     Dosage: 4 MG, UNK
  7. OMEPRAZOLE [Concomitant]
     Dosage: 40 MG, UNK
  8. PROTONIX [Concomitant]
     Dosage: UNK

REACTIONS (3)
  - Dysphagia [Unknown]
  - Drug ineffective for unapproved indication [Unknown]
  - Therapeutic response unexpected [Unknown]
